FAERS Safety Report 14975393 (Version 1)
Quarter: 2018Q2

REPORT INFORMATION
  Report Type: Spontaneous
  Country: GB (occurrence: GB)
  Receive Date: 20180605
  Receipt Date: 20180605
  Transmission Date: 20180711
  Serious: Yes (Other)
  Sender: FDA-Public Use
  Company Number: GB-MYLANLABS-2018M1036847

PATIENT
  Age: 50 Year
  Sex: Female

DRUGS (3)
  1. LABETALOL [Suspect]
     Active Substance: LABETALOL\LABETALOL HYDROCHLORIDE
     Indication: PRODUCT USED FOR UNKNOWN INDICATION
  2. NIFEDIPINE. [Suspect]
     Active Substance: NIFEDIPINE
     Indication: PRODUCT USED FOR UNKNOWN INDICATION
  3. FOLIC ACID. [Concomitant]
     Active Substance: FOLIC ACID
     Indication: PRODUCT USED FOR UNKNOWN INDICATION

REACTIONS (12)
  - Hyperglycaemia [Unknown]
  - Pre-eclampsia [Unknown]
  - Autonomic neuropathy [Unknown]
  - Gastritis [Unknown]
  - Herpes zoster [Unknown]
  - Hypoglycaemia [Unknown]
  - Polyhydramnios [Unknown]
  - Proteinuria [Unknown]
  - Exposure during pregnancy [Unknown]
  - Glomerular filtration rate decreased [Unknown]
  - Premature baby [Unknown]
  - Blood creatinine increased [Unknown]
